FAERS Safety Report 24782227 (Version 1)
Quarter: 2024Q4

REPORT INFORMATION
  Report Type: Spontaneous
  Country: JP (occurrence: JP)
  Receive Date: 20241227
  Receipt Date: 20241227
  Transmission Date: 20250114
  Serious: Yes (Life-Threatening, Other)
  Sender: SANOFI AVENTIS
  Company Number: JP-SA-2024SA382333

PATIENT
  Age: 63 Year
  Sex: Male

DRUGS (1)
  1. REZUROCK [Suspect]
     Active Substance: BELUMOSUDIL
     Dosage: 200 MG, QD
     Route: 048

REACTIONS (3)
  - Cholangiocarcinoma [Not Recovered/Not Resolved]
  - White blood cell count abnormal [Unknown]
  - Neutrophil count abnormal [Unknown]
